FAERS Safety Report 9048612 (Version 1)
Quarter: 2013Q1

REPORT INFORMATION
  Report Type: Spontaneous
  Country: US (occurrence: None)
  Receive Date: 20130130
  Receipt Date: 20130130
  Transmission Date: 20140127
  Serious: Yes (Hospitalization)
  Sender: FDA-Public Use
  Company Number: None

PATIENT
  Age: 77 Year
  Sex: Female
  Weight: 88.1 kg

DRUGS (9)
  1. LANTUS [Suspect]
     Dosage: 40 UNITSQAM CHRONIC WITH RECENT DECREASE
     Route: 058
  2. LANTUS [Suspect]
     Dosage: 30UNITS QHS  CHRONIC WITH RECENT DECREASE
     Route: 058
  3. NTG [Concomitant]
  4. ASA [Concomitant]
  5. METOPROLOL [Concomitant]
  6. AMIODARONE [Concomitant]
  7. LISINOPRIL [Concomitant]
  8. LASIS [Concomitant]
  9. METOLAZONE [Concomitant]

REACTIONS (3)
  - Hypoglycaemia [None]
  - Cardiac failure congestive [None]
  - Disorientation [None]
